FAERS Safety Report 23328763 (Version 3)
Quarter: 2024Q1

REPORT INFORMATION
  Report Type: Spontaneous
  Country: US (occurrence: US)
  Receive Date: 20231221
  Receipt Date: 20240222
  Transmission Date: 20240410
  Serious: Yes (Life-Threatening, Hospitalization)
  Sender: FDA-Public Use
  Company Number: US-BRISTOL-MYERS SQUIBB COMPANY-2023-185226

PATIENT
  Age: 54 Year
  Sex: Male

DRUGS (1)
  1. KENALOG-40 [Suspect]
     Active Substance: TRIAMCINOLONE ACETONIDE
     Indication: Arthritis
     Dosage: USP 400 MG PER 10 ML; 10 ML MULTIPLE DOSE VIAL?RIGHT KNEE ONCE
     Route: 014
     Dates: start: 20231206, end: 20231206

REACTIONS (2)
  - Staphylococcal infection [Unknown]
  - Arthritis infective [Unknown]

NARRATIVE: CASE EVENT DATE: 20231210
